FAERS Safety Report 4582164-2 (Version None)
Quarter: 2005Q1

REPORT INFORMATION
  Report Type: 
  Country: None (occurrence: None)
  Receive Date: 20050210
  Receipt Date: 20050128
  Transmission Date: 20050727
  Serious: Yes (Hospitalization, Other)
  Sender: FDA-Public Use
  Company Number: 2005023663

PATIENT
  Age: 86 Year
  Sex: Female
  Weight: 60.3284 kg

DRUGS (7)
  1. BEXTRA [Suspect]
     Indication: ARTHRITIS
     Dosage: 10 MG 10 MG, 1 IN 1 D, ORAL
     Route: 048
     Dates: start: 20040501
  2. OMEPRAZOLE [Concomitant]
  3. ESTRADIOL [Concomitant]
  4. VERAPAMIL [Concomitant]
  5. ATENOLOL [Concomitant]
  6. CALCIUM (CALCIUM) [Concomitant]
  7. MAGNESIUM (MAGNESIUM) [Concomitant]

REACTIONS (3)
  - FALL [None]
  - GASTROINTESTINAL ULCER HAEMORRHAGE [None]
  - INTERVERTEBRAL DISC COMPRESSION [None]
